FAERS Safety Report 16933917 (Version 4)
Quarter: 2020Q1

REPORT INFORMATION
  Report Type: Spontaneous
  Country: ES (occurrence: ES)
  Receive Date: 20191018
  Receipt Date: 20200128
  Transmission Date: 20200409
  Serious: Yes (Life-Threatening, Hospitalization)
  Sender: FDA-Public Use
  Company Number: ES-SUN PHARMACEUTICAL INDUSTRIES LTD-2019RR-224033

PATIENT
  Age: 80 Year
  Sex: Female
  Weight: 70 kg

DRUGS (6)
  1. AMIODARONA [Interacting]
     Active Substance: AMIODARONE
     Indication: ARRHYTHMIA
     Dosage: 20 MILLIGRAM, DAILY
     Route: 048
     Dates: start: 20180226, end: 20180510
  2. DILTIAZEM. [Interacting]
     Active Substance: DILTIAZEM
     Indication: HYPERTENSION
     Dosage: 60 MILLIGRAM, 1DOSE/12HOUR
     Route: 048
     Dates: start: 20180226
  3. ESPIRONOLACTONA [Interacting]
     Active Substance: SPIRONOLACTONE
     Indication: HYPERTENSION
     Dosage: ()
     Route: 048
     Dates: start: 20180405, end: 20180510
  4. VALSARTAN. [Suspect]
     Active Substance: VALSARTAN
     Indication: HYPERTENSION
     Dosage: 320 MILLIGRAMS, DAILY
     Route: 048
     Dates: start: 20120101, end: 20180510
  5. BOI-K [POTASSIUM CHLORIDE] [Interacting]
     Active Substance: POTASSIUM CHLORIDE
     Indication: NUTRITIONAL SUPPLEMENTATION
     Dosage: ()
     Route: 048
     Dates: start: 20120101, end: 20180510
  6. TORASEMIDA [Interacting]
     Active Substance: TORSEMIDE
     Indication: HYPERTENSION
     Dosage: ()
     Route: 048
     Dates: start: 20130901, end: 20180510

REACTIONS (3)
  - Hyperkalaemia [Recovered/Resolved]
  - Atrioventricular block complete [Recovered/Resolved with Sequelae]
  - Hypothyroidism [Not Recovered/Not Resolved]

NARRATIVE: CASE EVENT DATE: 20180510
